FAERS Safety Report 16856343 (Version 2)
Quarter: 2019Q3

REPORT INFORMATION
  Report Type: Spontaneous
  Country: US (occurrence: US)
  Receive Date: 20190926
  Receipt Date: 20190927
  Transmission Date: 20191005
  Serious: No
  Sender: FDA-Public Use
  Company Number: US-PFIZER INC-2019416608

PATIENT
  Age: 60 Year
  Sex: Male
  Weight: 88.45 kg

DRUGS (2)
  1. LYRICA [Suspect]
     Active Substance: PREGABALIN
     Indication: HYPERSENSITIVITY
     Dosage: 100 MG, 3X/DAY (TAKES 300MG NOW)
     Route: 048
  2. LYRICA [Suspect]
     Active Substance: PREGABALIN
     Indication: BURNING SENSATION
     Dosage: 450 MG, UNK
     Route: 048

REACTIONS (1)
  - Therapeutic product effect incomplete [Unknown]
